FAERS Safety Report 25905466 (Version 1)
Quarter: 2025Q4

REPORT INFORMATION
  Report Type: Spontaneous
  Country: US (occurrence: US)
  Receive Date: 20251010
  Receipt Date: 20251010
  Transmission Date: 20260118
  Serious: No
  Sender: ROCHE
  Company Number: US-ROCHE-10000399162

PATIENT
  Sex: Female

DRUGS (4)
  1. PHESGO [Suspect]
     Active Substance: HYALURONIDASE-ZZXF\PERTUZUMAB\TRASTUZUMAB
     Indication: Product used for unknown indication
     Dosage: LAST DOSE ON : 02-SEP-2025
     Route: 065
     Dates: start: 202501
  2. IBRANCE [Suspect]
     Active Substance: PALBOCICLIB
     Indication: Breast cancer
     Dosage: LAST DOSE WAS ON 19-AUG-2025
     Route: 048
     Dates: start: 20250805
  3. IBRANCE [Suspect]
     Active Substance: PALBOCICLIB
     Route: 048
     Dates: start: 20250911
  4. TAMOXIFEN [Concomitant]
     Active Substance: TAMOXIFEN
     Dates: start: 20250710

REACTIONS (6)
  - Full blood count abnormal [Unknown]
  - Groin pain [Unknown]
  - Blood alkaline phosphatase decreased [Unknown]
  - Neutrophil count [Unknown]
  - Blood creatinine increased [Unknown]
  - Ejection fraction decreased [Unknown]
